FAERS Safety Report 20571441 (Version 4)
Quarter: 2022Q3

REPORT INFORMATION
  Report Type: Report from Study
  Country: US (occurrence: US)
  Receive Date: 20220309
  Receipt Date: 20220804
  Transmission Date: 20221026
  Serious: Yes (Other)
  Sender: FDA-Public Use
  Company Number: US-NOVARTISTESTPH-NVSC2022US054240

PATIENT
  Age: 70 Year
  Sex: Female

DRUGS (13)
  1. KESIMPTA [Suspect]
     Active Substance: OFATUMUMAB
     Indication: Multiple sclerosis
     Dosage: 20 MG (WEEKS ON 0, 1, 2 FOLLOWED BY 20 MG SQ INJECTION MONTHLY STARTING AT MONTH 4)
     Route: 058
     Dates: start: 20210118, end: 20220509
  2. KESIMPTA [Suspect]
     Active Substance: OFATUMUMAB
     Indication: Relapsing multiple sclerosis
     Dosage: 20 MG, QMO
     Route: 058
  3. LORAZEPAM [Concomitant]
     Active Substance: LORAZEPAM
     Indication: Product used for unknown indication
     Dosage: 1 DOSAGE FORM, QD (AS NEEDED)
     Route: 048
  4. FOSAMAX [Concomitant]
     Active Substance: ALENDRONATE SODIUM
     Indication: Product used for unknown indication
     Dosage: 1 DOSAGE FORM, QW
     Route: 048
  5. CALCIUM [Concomitant]
     Active Substance: CALCIUM
     Indication: Product used for unknown indication
     Dosage: 1 DOSAGE FORM, QD
     Route: 048
  6. ZYRTEC [Concomitant]
     Active Substance: CETIRIZINE HYDROCHLORIDE
     Indication: Product used for unknown indication
     Dosage: 1 DOSAGE FORM, QD
     Route: 048
  7. VITAMIN E [Concomitant]
     Active Substance: .ALPHA.-TOCOPHEROL
     Indication: Product used for unknown indication
     Dosage: 1 DOSAGE FORM, QD (1000 UNIT)
     Route: 048
  8. LEVOTHYROXINE [Concomitant]
     Active Substance: LEVOTHYROXINE
     Indication: Product used for unknown indication
     Dosage: 1 DOSAGE FORM, QD
     Route: 048
  9. ZOFRAN [Concomitant]
     Active Substance: ONDANSETRON HYDROCHLORIDE
     Indication: Product used for unknown indication
     Dosage: 1 DOSAGE FORM, BID (DISINTEGRATING TABLET AS NEEDED)
     Route: 048
  10. VITAMIN B12 [Concomitant]
     Active Substance: CYANOCOBALAMIN
     Indication: Product used for unknown indication
     Dosage: 1 DOSAGE FORM, QD
     Route: 048
  11. IMIPRAMINE HYDROCHLORIDE [Concomitant]
     Active Substance: IMIPRAMINE HYDROCHLORIDE
     Indication: Product used for unknown indication
     Dosage: 1 DOSAGE FORM, QD
     Route: 048
  12. SOLU-MEDROL [Concomitant]
     Active Substance: METHYLPREDNISOLONE SODIUM SUCCINATE
     Indication: Multiple sclerosis
     Dosage: UNK (PER DAY X 2 DAYS, INFUSE OVER 1.5-2 HOURS AS TOLERATED)
     Route: 041
  13. CARBAMAZEPINE [Concomitant]
     Active Substance: CARBAMAZEPINE
     Indication: Product used for unknown indication
     Dosage: 1 DOSAGE FORM, TID
     Route: 048

REACTIONS (32)
  - Multiple sclerosis relapse [Unknown]
  - Syncope [Unknown]
  - Dizziness [Unknown]
  - Hypoaesthesia [Unknown]
  - Muscle spasms [Unknown]
  - Diplopia [Unknown]
  - Balance disorder [Unknown]
  - Asthenia [Unknown]
  - Malaise [Unknown]
  - Fatigue [Unknown]
  - Vision blurred [Unknown]
  - Hemiparesis [Unknown]
  - Tendon rupture [Recovering/Resolving]
  - Decreased immune responsiveness [Unknown]
  - B-lymphocyte count decreased [Unknown]
  - Urinary tract infection [Unknown]
  - Blood immunoglobulin G decreased [Not Recovered/Not Resolved]
  - Dry eye [Unknown]
  - Constipation [Unknown]
  - Loss of bladder sensation [Unknown]
  - Hypertonic bladder [Unknown]
  - Photosensitivity reaction [Unknown]
  - Temperature intolerance [Unknown]
  - Vertigo [Unknown]
  - Vitamin D deficiency [Unknown]
  - Oesophageal spasm [Unknown]
  - Blood immunoglobulin A decreased [Unknown]
  - Blood immunoglobulin M decreased [Unknown]
  - Hypertension [Unknown]
  - CD4 lymphocytes decreased [Unknown]
  - T-lymphocyte count decreased [Unknown]
  - Sinusitis [Recovering/Resolving]

NARRATIVE: CASE EVENT DATE: 20220511
